FAERS Safety Report 6004432-X (Version None)
Quarter: 2008Q4

REPORT INFORMATION
  Report Type: 
  Country: None (occurrence: None)
  Receive Date: 20081216
  Receipt Date: 20081208
  Transmission Date: 20090506
  Serious: Yes (Other)
  Sender: FDA-Public Use
  Company Number: JP-MERCK-0812USA02402

PATIENT
  Age: 83 Year
  Sex: Female

DRUGS (5)
  1. PEPCID [Suspect]
     Route: 041
     Dates: start: 20081203
  2. PENTAZOCINE LACTATE [Suspect]
     Route: 030
     Dates: start: 20081205, end: 20081205
  3. CEFAMEZIN [Suspect]
     Route: 041
     Dates: start: 20081203
  4. ATARAX [Concomitant]
     Route: 030
     Dates: start: 20081205, end: 20081205
  5. VEEN D [Concomitant]
     Route: 041
     Dates: start: 20081203

REACTIONS (1)
  - RESPIRATORY DEPRESSION [None]
